FAERS Safety Report 7550548-6 (Version None)
Quarter: 2011Q2

REPORT INFORMATION
  Report Type: 
  Country: None (occurrence: None)
  Receive Date: 20110616
  Receipt Date: 20110602
  Transmission Date: 20111010
  Serious: Yes (Other)
  Sender: FDA-Public Use
  Company Number: GB-AMGEN-GBRSP2011001873

PATIENT
  Age: 45 Year
  Sex: Female

DRUGS (10)
  1. HUMIRA [Suspect]
     Indication: RHEUMATOID ARTHRITIS
     Dosage: 40 MG, EVERY 2 WEEKS
     Dates: start: 20100223, end: 20101011
  2. METHOTREXATE [Concomitant]
     Indication: RHEUMATOID ARTHRITIS
     Dosage: 20 MG, WEEKLY
     Route: 048
     Dates: start: 20040601
  3. AMITRIPTYLINE HYDROCHLORIDE [Concomitant]
     Indication: MUSCLE RELAXANT THERAPY
     Dosage: 40 MG, 1X/DAY
     Route: 048
     Dates: start: 20040501
  4. DICLOFENAC SODIUM [Suspect]
     Indication: RHEUMATOID ARTHRITIS
     Dosage: 50 MG, 3X/DAY
     Route: 048
     Dates: start: 20080101
  5. ENBREL [Suspect]
     Indication: RHEUMATOID ARTHRITIS
     Dosage: 50 MG, QWK
     Route: 065
     Dates: start: 20091103
  6. TRAMADOL HCL [Concomitant]
     Indication: ANALGESIC THERAPY
     Dosage: 50 MG, UNK
     Route: 048
     Dates: start: 20040101
  7. TRAMADOL HCL [Concomitant]
     Indication: RHEUMATOID ARTHRITIS
  8. LEVOTHYROXINE SODIUM [Concomitant]
     Indication: THYROID DISORDER
     Dosage: UNK UNK, QD
     Route: 048
     Dates: start: 19990101
  9. FOLIC ACID [Concomitant]
     Indication: RHEUMATOID ARTHRITIS
     Dosage: 10 MG, WEEKLY
     Route: 048
     Dates: start: 20040601
  10. AMITRIPTYLINE HYDROCHLORIDE [Concomitant]
     Indication: RHEUMATOID ARTHRITIS

REACTIONS (1)
  - RECTAL HAEMORRHAGE [None]
